FAERS Safety Report 8177761-1 (Version None)
Quarter: 2012Q1

REPORT INFORMATION
  Report Type: 
  Country: None (occurrence: None)
  Receive Date: 20120301
  Receipt Date: 20120223
  Transmission Date: 20120608
  Serious: No
  Sender: FDA-Public Use
  Company Number: US-PFIZER INC-2012026735

PATIENT
  Sex: Male
  Weight: 118 kg

DRUGS (11)
  1. MULTI-VITAMINS [Concomitant]
     Dosage: UNK, DAILY
  2. LOVAZA [Concomitant]
     Dosage: 1000 MG, DAILY
  3. VITAMIN D [Concomitant]
     Dosage: 400 IU, DAILY
  4. ATORVASTATIN CALCIUM [Suspect]
     Indication: HYPERLIPIDAEMIA
  5. OMEPRAZOLE [Concomitant]
     Dosage: 40 MG, 2X/DAY
  6. AMLODIPINE [Concomitant]
     Dosage: 10 MG, DAILY
  7. ATORVASTATIN CALCIUM [Suspect]
     Indication: BLOOD CHOLESTEROL INCREASED
     Dosage: 10 MG DAILY
     Route: 048
  8. GABAPENTIN [Concomitant]
     Dosage: 300 MG, 5X/DAY
  9. LIPITOR [Suspect]
     Indication: BLOOD CHOLESTEROL INCREASED
     Dosage: 10 MG,  DAILY
     Dates: start: 19960101
  10. LIPITOR [Suspect]
     Dosage: UNK
  11. DICLOFENAC [Concomitant]
     Dosage: 75 MG, 2X/DAY

REACTIONS (5)
  - LIVER DISORDER [None]
  - ABDOMINAL PAIN UPPER [None]
  - DIARRHOEA [None]
  - PAIN [None]
  - GASTRIC DISORDER [None]
